FAERS Safety Report 21544797 (Version 1)
Quarter: 2022Q4

REPORT INFORMATION
  Report Type: Spontaneous
  Country: US (occurrence: None)
  Receive Date: 20221101
  Receipt Date: 20221101
  Transmission Date: 20230113
  Serious: Yes (Hospitalization)
  Sender: FDA-Public Use
  Company Number: None

PATIENT
  Age: 72 Year
  Sex: Male
  Weight: 117.48 kg

DRUGS (14)
  1. ABIRATERONE [Suspect]
     Active Substance: ABIRATERONE
     Indication: Prostate cancer
     Dosage: FREQUENCY : DAILY;?
     Route: 048
     Dates: start: 20220707
  2. ASTAXANTHIN BERBERINE COMPLEX [Concomitant]
  3. COENZYME Q10 [Concomitant]
     Active Substance: DIETARY SUPPLEMENT\UBIDECARENONE
  4. IBUPROFEN [Concomitant]
     Active Substance: IBUPROFEN
  5. CALCIUM\VITAMIN D [Concomitant]
     Active Substance: CALCIUM\VITAMIN D
  6. LIPITOR [Concomitant]
     Active Substance: ATORVASTATIN CALCIUM
  7. METHOCARBAMOL [Concomitant]
     Active Substance: METHOCARBAMOL
  8. MULTI-VITAMINS [Concomitant]
  9. PREDNISONE [Concomitant]
     Active Substance: PREDNISONE
  10. PULMICORT FLEXHALER INHALATION [Concomitant]
  11. SELENIUM [Concomitant]
     Active Substance: SELENIUM
  12. SYNTHROID [Concomitant]
     Active Substance: LEVOTHYROXINE SODIUM
  13. VALSARTAN [Concomitant]
     Active Substance: VALSARTAN
  14. ZYRTEC [Concomitant]
     Active Substance: CETIRIZINE HYDROCHLORIDE

REACTIONS (1)
  - Hospitalisation [None]
